FAERS Safety Report 16801959 (Version 3)
Quarter: 2020Q1

REPORT INFORMATION
  Report Type: Report from Study
  Country: EG (occurrence: EG)
  Receive Date: 20190912
  Receipt Date: 20200227
  Transmission Date: 20200409
  Serious: Yes (Other)
  Sender: FDA-Public Use
  Company Number: PHHY2018EG189439

PATIENT
  Age: 46 Year
  Sex: Female

DRUGS (5)
  1. DEPAKINE [Interacting]
     Active Substance: VALPROATE SODIUM
     Indication: HEADACHE
     Dosage: 1 DF, QD (1 TAB/DAY BEFORE SLEEP)
     Route: 065
  2. GLEEVEC [Suspect]
     Active Substance: IMATINIB MESYLATE
     Indication: CHRONIC MYELOID LEUKAEMIA
     Dosage: 1 DF, QD
     Route: 048
     Dates: start: 2012, end: 2014
  3. TASIGNA [Suspect]
     Active Substance: NILOTINIB
     Indication: CHRONIC MYELOID LEUKAEMIA
     Dosage: 2 DF, BID
     Route: 065
     Dates: start: 2014, end: 20181201
  4. TASIGNA [Suspect]
     Active Substance: NILOTINIB
     Dosage: UNK
     Route: 065
     Dates: start: 202001
  5. ROWATINEX [Concomitant]
     Active Substance: HERBALS
     Indication: PRODUCT USED FOR UNKNOWN INDICATION
     Route: 065

REACTIONS (19)
  - Bone pain [Not Recovered/Not Resolved]
  - Anaemia [Not Recovered/Not Resolved]
  - Fatigue [Not Recovered/Not Resolved]
  - Fatigue [Recovered/Resolved]
  - Vomiting [Recovered/Resolved]
  - Hypotension [Unknown]
  - Dental caries [Recovering/Resolving]
  - Headache [Not Recovered/Not Resolved]
  - Fatigue [Not Recovered/Not Resolved]
  - Toothache [Recovering/Resolving]
  - Diarrhoea [Recovering/Resolving]
  - Cholecystitis [Recovered/Resolved]
  - Pigmentation disorder [Recovered/Resolved]
  - Dysstasia [Not Recovered/Not Resolved]
  - Dizziness [Recovered/Resolved]
  - Drug interaction [Unknown]
  - Asthma [Recovering/Resolving]
  - Cytogenetic analysis abnormal [Unknown]
  - Dizziness [Not Recovered/Not Resolved]

NARRATIVE: CASE EVENT DATE: 2014
